FAERS Safety Report 15147268 (Version 1)
Quarter: 2018Q3

REPORT INFORMATION
  Report Type: Spontaneous
  Country: GB (occurrence: GB)
  Receive Date: 20180716
  Receipt Date: 20180716
  Transmission Date: 20181010
  Serious: Yes (Other)
  Sender: FDA-Public Use
  Company Number: GB-TEVA-2018-GB-926022

PATIENT
  Age: 48 Year
  Sex: Female
  Weight: 75.29 kg

DRUGS (3)
  1. PROCYCLIDINE [Concomitant]
     Active Substance: PROCYCLIDINE
     Indication: TREMOR
     Dosage: 5 MILLIGRAM DAILY;
  2. FLUOXETINE [Suspect]
     Active Substance: FLUOXETINE HYDROCHLORIDE
     Indication: BIPOLAR DISORDER
     Dosage: 60 MILLIGRAM DAILY;
     Route: 048
     Dates: start: 1995
  3. FLUPENTIXOL [Concomitant]
     Active Substance: FLUPENTIXOL
     Indication: MANIA
     Dates: start: 2006

REACTIONS (4)
  - Memory impairment [Not Recovered/Not Resolved]
  - Trichorrhexis [Unknown]
  - Hyponatraemia [Unknown]
  - Anorgasmia [Not Recovered/Not Resolved]

NARRATIVE: CASE EVENT DATE: 2000
